FAERS Safety Report 5075576-4 (Version None)
Quarter: 2006Q3

REPORT INFORMATION
  Report Type: 
  Country: None (occurrence: None)
  Receive Date: 20060809
  Receipt Date: 20060802
  Transmission Date: 20061208
  Serious: Yes (Life-Threatening)
  Sender: FDA-Public Use
  Company Number: IT-ROCHE-457727

PATIENT
  Age: 45 Year
  Sex: Male

DRUGS (4)
  1. PEGASYS [Suspect]
     Indication: CHRONIC HEPATITIS
     Dosage: FORM REPORTED AS VIAL.
     Route: 058
     Dates: start: 20060112, end: 20060119
  2. REBETOL [Suspect]
     Indication: CHRONIC HEPATITIS
     Route: 048
     Dates: start: 20060112, end: 20060119
  3. COMBIVIR [Concomitant]
     Route: 048
     Dates: start: 20041008, end: 20060712
  4. SUSTIVA [Concomitant]
     Route: 048
     Dates: start: 20041008, end: 20060712

REACTIONS (2)
  - CHEST PAIN [None]
  - CORONARY ARTERY DISEASE [None]
